FAERS Safety Report 17409442 (Version 1)
Quarter: 2020Q1

REPORT INFORMATION
  Report Type: Spontaneous
  Country: DK (occurrence: DK)
  Receive Date: 20200212
  Receipt Date: 20200212
  Transmission Date: 20200409
  Serious: Yes (Life-Threatening, Hospitalization)
  Sender: FDA-Public Use
  Company Number: DK-TEVA-2020-DK-1184493

PATIENT
  Age: 62 Year
  Sex: Male

DRUGS (5)
  1. ALLOPURINOL ^TEVA^ [Suspect]
     Active Substance: ALLOPURINOL
     Indication: GOUT
     Dosage: STRENGTH: 100 MG , 200 MG 1 DAYS
     Route: 048
     Dates: start: 20191218, end: 20200115
  2. CETIRIZINE [Concomitant]
     Active Substance: CETIRIZINE HYDROCHLORIDE
     Indication: URTICARIA
     Dosage: 10 MILLIGRAM DAILY; ?STRENGTH: 10 MG. DOSAGE: 1 TABLET PER DAY, NO MORE THAN ONCE DAILY.
     Route: 048
     Dates: start: 20200113
  3. PANTOPRAZOLE [Concomitant]
     Active Substance: PANTOPRAZOLE
     Indication: GASTROOESOPHAGEAL REFLUX DISEASE
     Dosage: STRENGTH: 40 MG. 40 MG 1 DAYS
     Route: 048
     Dates: start: 20190221
  4. DOLOPROCT [Concomitant]
     Active Substance: FLUOCORTOLONE PIVALATE\LIDOCAINE HYDROCHLORIDE
     Indication: HAEMORRHOIDS
     Dosage: STRENGTH: UNKNOWN. 2 DOSAGE FORMS 1 DAYS
     Route: 054
     Dates: start: 20160613
  5. ALK (802) HVEPSEGIFT [Concomitant]
     Indication: HYPERSENSITIVITY
     Dosage: STRENGTH: 100,000 SQ-U / ML. DOSAGE: DOSAGE ACCORDING TO WRITTEN INSTRUCTIONS
     Dates: start: 20150427

REACTIONS (11)
  - Lung consolidation [Not Recovered/Not Resolved]
  - Rash [Unknown]
  - Pyrexia [Unknown]
  - Drug reaction with eosinophilia and systemic symptoms [Not Recovered/Not Resolved]
  - Erythema [Unknown]
  - Pyelonephritis [Not Recovered/Not Resolved]
  - Lung infiltration [Not Recovered/Not Resolved]
  - Pneumothorax [Unknown]
  - Circulatory collapse [Unknown]
  - Brain oedema [Not Recovered/Not Resolved]
  - Confusional state [Unknown]

NARRATIVE: CASE EVENT DATE: 202001
